FAERS Safety Report 24460305 (Version 1)
Quarter: 2024Q4

REPORT INFORMATION
  Report Type: Spontaneous
  Country: US (occurrence: None)
  Receive Date: 20241017
  Receipt Date: 20241017
  Transmission Date: 20250115
  Serious: Yes (Other)
  Sender: Public
  Company Number: None

PATIENT
  Age: 27 Year
  Sex: Female
  Weight: 103.5 kg

DRUGS (10)
  1. AUVELITY [Suspect]
     Active Substance: BUPROPION HYDROCHLORIDE\DEXTROMETHORPHAN HYDROBROMIDE
     Indication: Major depression
     Dosage: FREQUENCY : TWICE A DAY;?
     Route: 048
     Dates: start: 20230505, end: 20240912
  2. AJOVY [Concomitant]
     Active Substance: FREMANEZUMAB-VFRM
  3. ARMOUR THYROID [Concomitant]
     Active Substance: THYROID, PORCINE
  4. LEVOMEFOLIC ACID [Concomitant]
     Active Substance: LEVOMEFOLIC ACID
  5. XANAX [Concomitant]
     Active Substance: ALPRAZOLAM
  6. VYVANSE [Concomitant]
     Active Substance: LISDEXAMFETAMINE DIMESYLATE
  7. ZOFRAN [Concomitant]
     Active Substance: ONDANSETRON HYDROCHLORIDE
  8. UBRELVY [Concomitant]
     Active Substance: UBROGEPANT
  9. IRON [Concomitant]
     Active Substance: IRON
  10. VITAMIN D [Concomitant]
     Active Substance: VITAMIN D NOS

REACTIONS (14)
  - Formication [None]
  - Ventricular extrasystoles [None]
  - Palpitations [None]
  - Raynaud^s phenomenon [None]
  - Hyperhidrosis [None]
  - Temperature intolerance [None]
  - Abdominal discomfort [None]
  - Nausea [None]
  - Fatigue [None]
  - Dizziness [None]
  - Motion sickness [None]
  - Suicidal ideation [None]
  - Vision blurred [None]
  - Obsessive thoughts [None]

NARRATIVE: CASE EVENT DATE: 20240912
